FAERS Safety Report 12986713 (Version 2)
Quarter: 2017Q1

REPORT INFORMATION
  Report Type: Spontaneous
  Country: US (occurrence: US)
  Receive Date: 20161130
  Receipt Date: 20170203
  Transmission Date: 20170428
  Serious: Yes (Other)
  Sender: FDA-Public Use
  Company Number: US-PFIZER INC-2016551383

PATIENT
  Age: 66 Year
  Sex: Female

DRUGS (12)
  1. ULTIMATE PROBIOTIC ACIDOPHILUS [Concomitant]
     Dosage: UNK
  2. COENZYME Q10 [Concomitant]
     Active Substance: UBIDECARENONE
     Dosage: 200 MG, ONCE A DAY
  3. DULOXETINE. [Concomitant]
     Active Substance: DULOXETINE
     Dosage: 60 MG, 1 CAPSULE EVERYDAY
  4. LUTEIN ZEAXANTHIN [Concomitant]
     Dosage: UNK UNK, ONCE A DAY
  5. LOSARTAN. [Concomitant]
     Active Substance: LOSARTAN
     Dosage: 100 MG, 1 TABLET EVERYDAY
  6. BACLOFEN. [Concomitant]
     Active Substance: BACLOFEN
     Dosage: UNK, 10 MG  TABL 1 AND 1/2  TABLET 3 X DAILY
  7. LEVOTHYROXINE. [Concomitant]
     Active Substance: LEVOTHYROXINE
     Dosage: 100 MG, 1 TABLET EVERYDAY
  8. GABAPENTIN. [Concomitant]
     Active Substance: GABAPENTIN
     Dosage: 900 MG, DAILY(300MG 3 CAPSULES DAILY)
  9. LOVASTATIN. [Concomitant]
     Active Substance: LOVASTATIN
     Dosage: 20 MG, 1 TABLET EVERYDAY
  10. LYRICA [Suspect]
     Active Substance: PREGABALIN
     Indication: DIABETIC NEUROPATHY
     Dosage: 75 MG, TWICE DAILY
     Route: 048
  11. VITAMIN C [Concomitant]
     Active Substance: ASCORBIC ACID
     Dosage: 1000 MG, UNK
  12. VITAMIN D3 [Concomitant]
     Active Substance: CHOLECALCIFEROL
     Dosage: 10000 IU, 1X/DAY (5000 IU 2 A DAY)

REACTIONS (3)
  - Central nervous system viral infection [Unknown]
  - Hypoaesthesia [Unknown]
  - Spinal cord infection [Unknown]
